FAERS Safety Report 9202054 (Version 2)
Quarter: 2013Q2

REPORT INFORMATION
  Report Type: Spontaneous
  Country: CA (occurrence: CA)
  Receive Date: 20130401
  Receipt Date: 20130410
  Transmission Date: 20140414
  Serious: Yes (Other)
  Sender: FDA-Public Use
  Company Number: CA-ASTRAZENECA-2013SE19967

PATIENT
  Age: 39 Year
  Sex: Female

DRUGS (10)
  1. SEROQUEL IR [Suspect]
     Indication: SLEEP DISORDER
     Route: 048
     Dates: start: 20130206
  2. SEROQUEL IR [Suspect]
     Indication: SLEEP DISORDER
     Route: 048
  3. EFFEXOR XR [Concomitant]
     Route: 048
     Dates: start: 20130103
  4. MINESTRIN [Concomitant]
     Dosage: EVERYDAY
     Route: 048
     Dates: start: 201202
  5. SYNTHROID [Concomitant]
     Route: 048
     Dates: start: 2008
  6. AVAMYS [Concomitant]
     Dosage: TWO SPRAY EACH NOSTRIL, EVERY DAY
     Route: 045
     Dates: start: 2011
  7. VITAMIN D [Concomitant]
     Route: 048
  8. RIVATRIL [Concomitant]
     Route: 048
     Dates: start: 2010
  9. REACTINE [Concomitant]
     Route: 048
  10. REACTINE [Concomitant]
     Route: 048

REACTIONS (2)
  - Amenorrhoea [Unknown]
  - Intentional drug misuse [Unknown]
